FAERS Safety Report 21283411 (Version 5)
Quarter: 2023Q4

REPORT INFORMATION
  Report Type: Spontaneous
  Country: US (occurrence: US)
  Receive Date: 20220901
  Receipt Date: 20231115
  Transmission Date: 20240110
  Serious: No
  Sender: FDA-Public Use
  Company Number: US-PFIZER INC-PV202200054967

PATIENT
  Age: 46 Year
  Sex: Female

DRUGS (3)
  1. CIBINQO [Interacting]
     Active Substance: ABROCITINIB
     Indication: Vitiligo
     Dosage: 100 MG, 1X/DAY
     Route: 048
  2. CIBINQO [Interacting]
     Active Substance: ABROCITINIB
     Indication: Dermatitis atopic
  3. PAROXETINE [Interacting]
     Active Substance: PAROXETINE
     Dosage: UNK

REACTIONS (1)
  - Drug interaction [Unknown]
